FAERS Safety Report 15160349 (Version 1)
Quarter: 2018Q3

REPORT INFORMATION
  Report Type: Spontaneous
  Country: US (occurrence: US)
  Receive Date: 20180621
  Receipt Date: 20180621
  Transmission Date: 20181010
  Serious: Yes (Death)
  Sender: FDA-Public Use
  Company Number: None

PATIENT
  Age: 64 Year
  Sex: Female

DRUGS (2)
  1. TEMOZOLOMIDE. [Suspect]
     Active Substance: TEMOZOLOMIDE
     Indication: CEREBRAL DISORDER
     Dosage: ?          OTHER FREQUENCY:DAILY FOR 6 WKS ;?
     Route: 048
     Dates: start: 20180418, end: 20180603
  2. TEMOZOLOMIDE. [Suspect]
     Active Substance: TEMOZOLOMIDE
     Indication: BRAIN NEOPLASM MALIGNANT
     Dosage: ?          OTHER FREQUENCY:DAILY FOR 6 WKS ;?
     Route: 048
     Dates: start: 20180418, end: 20180603

REACTIONS (1)
  - Death [None]

NARRATIVE: CASE EVENT DATE: 20180603
